FAERS Safety Report 14710139 (Version 1)
Quarter: 2018Q2

REPORT INFORMATION
  Report Type: Spontaneous
  Country: US (occurrence: US)
  Receive Date: 20180403
  Receipt Date: 20180403
  Transmission Date: 20180711
  Serious: No
  Sender: FDA-Public Use
  Company Number: US-ROCHE-1932447

PATIENT
  Sex: Male

DRUGS (3)
  1. ERIVEDGE [Suspect]
     Active Substance: VISMODEGIB
     Indication: POST PROCEDURAL HYPOTHYROIDISM
     Route: 048
     Dates: start: 20170206
  2. TAMSULOSIN [Concomitant]
     Active Substance: TAMSULOSIN
  3. ERIVEDGE [Suspect]
     Active Substance: VISMODEGIB
     Indication: HYPOTHYROIDISM

REACTIONS (2)
  - Cystitis [Unknown]
  - Dysgeusia [Unknown]
